FAERS Safety Report 21510371 (Version 1)
Quarter: 2022Q4

REPORT INFORMATION
  Report Type: Spontaneous
  Country: US (occurrence: US)
  Receive Date: 20221026
  Receipt Date: 20221026
  Transmission Date: 20230113
  Serious: No
  Sender: FDA-Public Use
  Company Number: US-ALLERGAN-2215646US

PATIENT

DRUGS (1)
  1. INFED [Suspect]
     Active Substance: IRON DEXTRAN
     Indication: Product used for unknown indication
     Dosage: UNK

REACTIONS (3)
  - Injection site extravasation [Unknown]
  - Injection site discolouration [Unknown]
  - Injection site swelling [Unknown]
